FAERS Safety Report 17072328 (Version 1)
Quarter: 2019Q4

REPORT INFORMATION
  Report Type: Spontaneous
  Country: US (occurrence: US)
  Receive Date: 20191123
  Receipt Date: 20191123
  Transmission Date: 20200122
  Serious: Yes (Disabling)
  Sender: FDA-Public Use
  Company Number: None

PATIENT
  Age: 24 Year
  Sex: Male
  Weight: 58.5 kg

DRUGS (2)
  1. MULTIVITAMIN (MEN^S ONCE-A-DAY) [Concomitant]
  2. AIMOVIG [Suspect]
     Active Substance: ERENUMAB-AOOE
     Indication: HEADACHE
     Dates: start: 20191004, end: 20191004

REACTIONS (10)
  - Dehydration [None]
  - Urinary tract infection [None]
  - Neuropathy peripheral [None]
  - Depression [None]
  - Nausea [None]
  - Insomnia [None]
  - Blood pressure increased [None]
  - Quality of life decreased [None]
  - Cognitive disorder [None]
  - Constipation [None]

NARRATIVE: CASE EVENT DATE: 20191004
